FAERS Safety Report 9371026 (Version 1)
Quarter: 2013Q2

REPORT INFORMATION
  Report Type: Spontaneous
  Country: NG (occurrence: NG)
  Receive Date: 20130627
  Receipt Date: 20130627
  Transmission Date: 20140414
  Serious: Yes (Life-Threatening)
  Sender: FDA-Public Use
  Company Number: NG-ROCHE-1241308

PATIENT
  Age: 1 Year
  Sex: Female
  Weight: 7.4 kg

DRUGS (2)
  1. ROCEPHIN [Suspect]
     Indication: SEPSIS
     Route: 065
     Dates: start: 20130531
  2. ZITHROMAX [Concomitant]
     Indication: SEPSIS
     Dosage: 150MG DAILY FOR 5 DAYS SUSPENSION
     Route: 065
     Dates: start: 20130531

REACTIONS (1)
  - Convulsion [Recovered/Resolved]
